FAERS Safety Report 21447892 (Version 1)
Quarter: 2022Q4

REPORT INFORMATION
  Report Type: Report from Study
  Country: US (occurrence: US)
  Receive Date: 20221012
  Receipt Date: 20221012
  Transmission Date: 20230113
  Serious: Yes (Hospitalization, Other)
  Sender: FDA-Public Use
  Company Number: US-BRISTOL-MYERS SQUIBB COMPANY-2022-117903

PATIENT
  Age: 81 Year
  Sex: Male
  Weight: 80.92 kg

DRUGS (2)
  1. IPILIMUMAB [Suspect]
     Active Substance: IPILIMUMAB
     Indication: Angiosarcoma
     Dosage: ON DAY 1?TOTAL DOSE RECEIVED THIS COURSE: 85MG
     Route: 042
     Dates: start: 20191028, end: 20200413
  2. NIVOLUMAB [Suspect]
     Active Substance: NIVOLUMAB
     Indication: Angiosarcoma
     Dosage: ON DAYS 1, 15, AND 29 ?TOTAL DOSE ADMINISTERED THIS COURSE OF NIVOLUMAB WAS 240MG
     Route: 042
     Dates: start: 20191028, end: 20200511

REACTIONS (2)
  - Metabolic encephalopathy [Unknown]
  - Urosepsis [Recovering/Resolving]

NARRATIVE: CASE EVENT DATE: 20200525
